FAERS Safety Report 5773210-9 (Version None)
Quarter: 2008Q2

REPORT INFORMATION
  Report Type: 
  Country: None (occurrence: None)
  Receive Date: 20080613
  Receipt Date: 20080613
  Transmission Date: 20081010
  Serious: Yes (Other)
  Sender: FDA-Public Use
  Company Number: None

PATIENT
  Age: 20 Year
  Sex: Female
  Weight: 48.0813 kg

DRUGS (1)
  1. YAZ [Suspect]
     Indication: CONTRACEPTION
     Dosage: 3MG/0.02MG 1 DAILY PO
     Route: 048
     Dates: start: 20080523, end: 20080611

REACTIONS (13)
  - AFFECTIVE DISORDER [None]
  - APATHY [None]
  - CRYING [None]
  - DECREASED INTEREST [None]
  - DEPRESSION [None]
  - EMOTIONAL DISORDER [None]
  - FEELING ABNORMAL [None]
  - FEELING OF DESPAIR [None]
  - FEELINGS OF WORTHLESSNESS [None]
  - FLAT AFFECT [None]
  - LOSS OF LIBIDO [None]
  - PARTNER STRESS [None]
  - SOCIAL PROBLEM [None]
